FAERS Safety Report 12896129 (Version 1)
Quarter: 2016Q4

REPORT INFORMATION
  Report Type: Spontaneous
  Country: US (occurrence: US)
  Receive Date: 20161031
  Receipt Date: 20161031
  Transmission Date: 20170207
  Serious: No
  Sender: FDA-Public Use
  Company Number: US-JAZZ-2016-US-016050

PATIENT
  Sex: Female

DRUGS (37)
  1. ACTOS [Concomitant]
     Active Substance: PIOGLITAZONE HYDROCHLORIDE
  2. LINZESS [Concomitant]
     Active Substance: LINACLOTIDE
  3. V GONE [Concomitant]
  4. ELIQUIS [Concomitant]
     Active Substance: APIXABAN
  5. INSULIN ASPART [Concomitant]
     Active Substance: INSULIN ASPART
  6. BACLOFEN. [Concomitant]
     Active Substance: BACLOFEN
  7. NORCO [Concomitant]
     Active Substance: ACETAMINOPHEN\HYDROCODONE BITARTRATE
  8. EPIPEN [Concomitant]
     Active Substance: EPINEPHRINE
  9. MULTIVITAMIN WITH MINERALS [Concomitant]
     Active Substance: MINERALS\VITAMINS
  10. OXYCONTIN [Concomitant]
     Active Substance: OXYCODONE HYDROCHLORIDE
  11. PROVIGIL [Concomitant]
     Active Substance: MODAFINIL
  12. VICTOZA [Concomitant]
     Active Substance: LIRAGLUTIDE
  13. AMANTADINE [Concomitant]
     Active Substance: AMANTADINE
  14. LISINOPRIL. [Concomitant]
     Active Substance: LISINOPRIL
  15. ACETYL L-CARNITINE [Concomitant]
     Active Substance: ACETYLCARNITINE
  16. LUGOL [Concomitant]
     Active Substance: IODINE\POTASSIUM IODIDE
  17. XYREM [Suspect]
     Active Substance: SODIUM OXYBATE
     Dosage: 4.5 G, BID
     Route: 048
     Dates: start: 201508
  18. COUMADIN [Concomitant]
     Active Substance: WARFARIN SODIUM
  19. CYMBALTA [Concomitant]
     Active Substance: DULOXETINE HYDROCHLORIDE
  20. DHEA [Concomitant]
     Active Substance: PRASTERONE
  21. GABAPENTIN. [Concomitant]
     Active Substance: GABAPENTIN
  22. XYREM [Suspect]
     Active Substance: SODIUM OXYBATE
     Indication: NARCOLEPSY
     Dosage: 2.25 G, BID
     Route: 048
     Dates: start: 201507, end: 201507
  23. DEPLIN [Concomitant]
     Active Substance: LEVOMEFOLATE CALCIUM
  24. CARNITYL [Concomitant]
  25. OMEPRAZOLE. [Concomitant]
     Active Substance: OMEPRAZOLE
  26. PYRIDOSTIGMINE BROMIDE. [Concomitant]
     Active Substance: PYRIDOSTIGMINE BROMIDE
  27. CYTOMEL [Concomitant]
     Active Substance: LIOTHYRONINE SODIUM
  28. MIRAPEX [Concomitant]
     Active Substance: PRAMIPEXOLE DIHYDROCHLORIDE
  29. SYNTHROID [Concomitant]
     Active Substance: LEVOTHYROXINE SODIUM
  30. LIOTHYRONINE SODIUM. [Concomitant]
     Active Substance: LIOTHYRONINE SODIUM
  31. XYREM [Suspect]
     Active Substance: SODIUM OXYBATE
     Dosage: DOSE ADJUSTMENTS
     Route: 048
     Dates: start: 201507, end: 201508
  32. ADDERALL [Concomitant]
     Active Substance: AMPHETAMINE ASPARTATE\AMPHETAMINE SULFATE\DEXTROAMPHETAMINE SACCHARATE\DEXTROAMPHETAMINE SULFATE
  33. ASPIRIN. [Concomitant]
     Active Substance: ASPIRIN
  34. SELENIUM [Concomitant]
     Active Substance: SELENIUM
  35. VITAMIN D3 [Concomitant]
     Active Substance: CHOLECALCIFEROL
  36. FISH OIL [Concomitant]
     Active Substance: FISH OIL
  37. HYDROCORTISONE. [Concomitant]
     Active Substance: HYDROCORTISONE

REACTIONS (1)
  - Constipation [Not Recovered/Not Resolved]
